FAERS Safety Report 13925072 (Version 1)
Quarter: 2017Q3

REPORT INFORMATION
  Report Type: Spontaneous
  Country: US (occurrence: US)
  Receive Date: 20170831
  Receipt Date: 20170831
  Transmission Date: 20171127
  Serious: No
  Sender: FDA-Public Use
  Company Number: US-BAYER-2017-163909

PATIENT
  Sex: Female

DRUGS (2)
  1. MIRALAX [Suspect]
     Active Substance: POLYETHYLENE GLYCOL 3350
     Indication: DIVERTICULUM
     Dosage: UNK UNK, QD
     Route: 065
  2. STOOL SOFTENER (DOCUSATE) [Concomitant]
     Active Substance: DOCUSATE

REACTIONS (6)
  - Product use in unapproved indication [Unknown]
  - Pain [Unknown]
  - Inappropriate prescribing [Unknown]
  - Incorrect drug administration duration [Unknown]
  - Off label use [Unknown]
  - Gastrointestinal motility disorder [None]
